FAERS Safety Report 5876796-9 (Version None)
Quarter: 2008Q3

REPORT INFORMATION
  Report Type: 
  Country: None (occurrence: None)
  Receive Date: 20080910
  Receipt Date: 20080901
  Transmission Date: 20090109
  Serious: Yes (Other)
  Sender: FDA-Public Use
  Company Number: US-ASTRAZENECA-2008AC02369

PATIENT
  Age: 73 Year
  Sex: Female

DRUGS (3)
  1. BUPIVACAINE [Suspect]
     Indication: PAIN
     Dosage: DAY 1
     Route: 053
  2. BUPIVACAINE [Suspect]
     Dosage: DAY 2
     Route: 053
  3. BUPIVACAINE [Suspect]
     Dosage: DAY 3
     Route: 053

REACTIONS (6)
  - ACCIDENTAL OVERDOSE [None]
  - DRUG TOXICITY [None]
  - DYSPNOEA [None]
  - HYPOPNOEA [None]
  - SOMNOLENCE [None]
  - UNRESPONSIVE TO STIMULI [None]
